FAERS Safety Report 4743489-0 (Version None)
Quarter: 2005Q3

REPORT INFORMATION
  Report Type: 
  Country: None (occurrence: None)
  Receive Date: 20050809
  Receipt Date: 20050728
  Transmission Date: 20060218
  Serious: Yes (Hospitalization)
  Sender: FDA-Public Use
  Company Number: NLWYE867729JUL05

PATIENT
  Age: 46 Year

DRUGS (2)
  1. SIROLIMUS (SIROLIMUS, TABLET) [Suspect]
     Indication: PROPHYLAXIS AGAINST TRANSPLANT REJECTION
     Dosage: 2 MG (FREQUENCY NOT SPECIFIED),  ORAL
     Route: 048
     Dates: start: 20050224
  2. TACROLIMUS (TACROLIMUS, , 0) [Suspect]
     Indication: PROPHYLAXIS AGAINST TRANSPLANT REJECTION
     Dosage: 8 MG (FREQUENCY NOT SPECIFIED), ORAL
     Route: 048
     Dates: start: 20050224, end: 20050404

REACTIONS (3)
  - KIDNEY TRANSPLANT REJECTION [None]
  - STAPHYLOCOCCAL SEPSIS [None]
  - URETERIC STENOSIS [None]
